FAERS Safety Report 13051835 (Version 15)
Quarter: 2018Q4

REPORT INFORMATION
  Report Type: Report from Study
  Country: ES (occurrence: ES)
  Receive Date: 20161221
  Receipt Date: 20181018
  Transmission Date: 20190204
  Serious: Yes (Hospitalization, Other)
  Sender: FDA-Public Use
  Company Number: ES-SA-2016SA228174

PATIENT
  Age: 36 Year
  Sex: Female
  Weight: 52.5 kg

DRUGS (1)
  1. ALEMTUZUMAB [Suspect]
     Active Substance: ALEMTUZUMAB
     Indication: MULTIPLE SCLEROSIS RELAPSE
     Dosage: 12 MG,QD
     Route: 041
     Dates: start: 20161128, end: 20161202

REACTIONS (15)
  - Rash erythematous [Recovered/Resolved]
  - Rash erythematous [Recovered/Resolved]
  - Headache [Recovered/Resolved]
  - Erythema [Recovered/Resolved]
  - Staphylococcal bacteraemia [Recovered/Resolved]
  - Thrombophlebitis [Recovering/Resolving]
  - Rash erythematous [Recovered/Resolved]
  - Hypoaesthesia [Recovering/Resolving]
  - Acquired claw toe [Recovering/Resolving]
  - Affect lability [Recovered/Resolved]
  - Headache [Recovering/Resolving]
  - Localised infection [Recovering/Resolving]
  - Body temperature increased [Recovered/Resolved]
  - Phlebitis [Recovered/Resolved]
  - Multiple sclerosis relapse [Recovered/Resolved with Sequelae]

NARRATIVE: CASE EVENT DATE: 20161130
